FAERS Safety Report 11237230 (Version 8)
Quarter: 2016Q1

REPORT INFORMATION
  Report Type: Report from Study
  Country: DE (occurrence: DE)
  Receive Date: 20150703
  Receipt Date: 20160201
  Transmission Date: 20160525
  Serious: Yes (Hospitalization, Other)
  Sender: FDA-Public Use
  Company Number: DE-JNJFOC-20150305643

PATIENT
  Age: 72 Year
  Sex: Male

DRUGS (3)
  1. IMBRUVICA [Suspect]
     Active Substance: IBRUTINIB
     Indication: CHRONIC LYMPHOCYTIC LEUKAEMIA
     Route: 048
     Dates: start: 20141216, end: 20150607
  2. IMBRUVICA [Suspect]
     Active Substance: IBRUTINIB
     Indication: CHRONIC LYMPHOCYTIC LEUKAEMIA
     Route: 048
     Dates: start: 201601
  3. IMBRUVICA [Suspect]
     Active Substance: IBRUTINIB
     Indication: CHRONIC LYMPHOCYTIC LEUKAEMIA
     Route: 048
     Dates: end: 201601

REACTIONS (24)
  - White blood cell count increased [Not Recovered/Not Resolved]
  - Ingrowing nail [Unknown]
  - Pyrexia [Recovered/Resolved]
  - Squamous cell carcinoma [Not Recovered/Not Resolved]
  - Tooth extraction [Unknown]
  - Depressed mood [Not Recovered/Not Resolved]
  - Night sweats [Recovered/Resolved]
  - Dry mouth [Recovered/Resolved]
  - Sleep disorder [Unknown]
  - Weight decreased [Recovered/Resolved]
  - Leukocytosis [Recovered/Resolved]
  - Pneumonia [Unknown]
  - Cholelithiasis [Unknown]
  - Oral pain [Recovered/Resolved]
  - Haematoma [Unknown]
  - Rash pruritic [Unknown]
  - Hiccups [Unknown]
  - Haemorrhage [Recovered/Resolved]
  - Blister [Recovered/Resolved]
  - Asthenia [Recovered/Resolved]
  - Blood test abnormal [Recovering/Resolving]
  - Fatigue [Not Recovered/Not Resolved]
  - Hypokinesia [Recovered/Resolved]
  - Lymphadenopathy [Recovering/Resolving]

NARRATIVE: CASE EVENT DATE: 20150307
